FAERS Safety Report 20775224 (Version 2)
Quarter: 2022Q3

REPORT INFORMATION
  Report Type: Spontaneous
  Country: AU (occurrence: AU)
  Receive Date: 20220502
  Receipt Date: 20220712
  Transmission Date: 20221026
  Serious: Yes (Death, Life-Threatening, Hospitalization, Other)
  Sender: FDA-Public Use
  Company Number: AU-CELGENE-AUS-20190703463

PATIENT
  Sex: Female
  Weight: 43.7 kg

DRUGS (43)
  1. ABRAXANE [Suspect]
     Active Substance: PACLITAXEL
     Indication: Pancreatic carcinoma metastatic
     Dosage: FREQUENCY TEXT: NOT PROVIDED
     Dates: start: 20190507, end: 20190507
  2. ABRAXANE [Suspect]
     Active Substance: PACLITAXEL
     Dosage: FREQUENCY TEXT: NOT PROVIDED
     Dates: start: 20190521, end: 20190521
  3. ABRAXANE [Suspect]
     Active Substance: PACLITAXEL
     Dosage: FREQUENCY TEXT: NOT PROVIDED
     Dates: start: 20190604, end: 20190604
  4. ABRAXANE [Suspect]
     Active Substance: PACLITAXEL
     Dosage: FREQUENCY TEXT: NOT PROVIDED
     Dates: start: 20190611, end: 20190611
  5. ABRAXANE [Suspect]
     Active Substance: PACLITAXEL
     Dosage: FREQUENCY TEXT: NOT PROVIDED
     Dates: start: 20190618, end: 20190618
  6. ABRAXANE [Suspect]
     Active Substance: PACLITAXEL
     Dosage: FREQUENCY TEXT: NOT PROVIDED
     Dates: start: 20190702, end: 20190702
  7. ABRAXANE [Suspect]
     Active Substance: PACLITAXEL
     Dosage: FREQUENCY TEXT: NOT PROVIDED
     Dates: start: 20190813, end: 20190813
  8. ABRAXANE [Suspect]
     Active Substance: PACLITAXEL
     Dosage: FREQUENCY TEXT: NOT PROVIDED
     Dates: start: 20190827, end: 20190827
  9. GEMCITABINE [Suspect]
     Active Substance: GEMCITABINE
     Indication: Pancreatic carcinoma metastatic
     Dosage: 1000 MG/M2
     Route: 065
     Dates: start: 20190507, end: 20190507
  10. GEMCITABINE [Suspect]
     Active Substance: GEMCITABINE
     Dosage: 750 MG/M2
     Route: 065
     Dates: start: 20190521, end: 20190521
  11. GEMCITABINE [Suspect]
     Active Substance: GEMCITABINE
     Dosage: 750 MG/M2
     Route: 065
     Dates: start: 20190604, end: 20190604
  12. GEMCITABINE [Suspect]
     Active Substance: GEMCITABINE
     Dosage: 750 MG/M2
     Route: 065
     Dates: start: 20190611, end: 20190611
  13. GEMCITABINE [Suspect]
     Active Substance: GEMCITABINE
     Dosage: 750 MG/M2
     Route: 065
     Dates: start: 20190618, end: 20190618
  14. GEMCITABINE [Suspect]
     Active Substance: GEMCITABINE
     Dosage: 750 MG/M2
     Route: 065
     Dates: start: 20190702, end: 20190702
  15. GEMCITABINE [Suspect]
     Active Substance: GEMCITABINE
     Dosage: 600 MG/M2
     Route: 065
     Dates: start: 20190813, end: 20190813
  16. GEMCITABINE [Suspect]
     Active Substance: GEMCITABINE
     Dosage: 600 MG/M2
     Route: 065
     Dates: start: 20190827, end: 20190827
  17. CREON [Concomitant]
     Active Substance: PANCRELIPASE AMYLASE\PANCRELIPASE LIPASE\PANCRELIPASE PROTEASE
     Indication: Pancreatic failure
     Dosage: 2.0DF AS REQUIRED
     Route: 048
     Dates: start: 201903
  18. DOCUSATE SODIUM\SENNOSIDE B [Concomitant]
     Active Substance: DOCUSATE SODIUM\SENNOSIDE B
     Indication: Constipation prophylaxis
     Dosage: 2.0DF AS REQUIRED
     Route: 048
     Dates: start: 201903
  19. PANTOPRAZOLE [Concomitant]
     Active Substance: PANTOPRAZOLE
     Indication: Gastrooesophageal reflux disease
     Dosage: 40 MILLIGRAM
     Route: 048
     Dates: start: 201903
  20. PANTOPRAZOLE [Concomitant]
     Active Substance: PANTOPRAZOLE
     Indication: Gastrointestinal haemorrhage
     Route: 048
     Dates: start: 201903
  21. PANTOPRAZOLE [Concomitant]
     Active Substance: PANTOPRAZOLE
     Route: 048
     Dates: start: 20190709, end: 20190711
  22. PANTOPRAZOLE [Concomitant]
     Active Substance: PANTOPRAZOLE
     Route: 048
     Dates: start: 20190709, end: 20190711
  23. PANTOPRAZOLE [Concomitant]
     Active Substance: PANTOPRAZOLE
     Route: 042
     Dates: start: 20190711, end: 20190718
  24. PANTOPRAZOLE [Concomitant]
     Active Substance: PANTOPRAZOLE
     Route: 042
     Dates: start: 20190711, end: 20190718
  25. POTASSIUM [Concomitant]
     Active Substance: POTASSIUM
     Indication: Hypokalaemia
     Route: 048
     Dates: start: 201904, end: 20190521
  26. POTASSIUM [Concomitant]
     Active Substance: POTASSIUM
     Route: 042
     Dates: start: 20190520, end: 20190521
  27. POTASSIUM [Concomitant]
     Active Substance: POTASSIUM
     Dosage: 6 DOSAGE FORMS, 3 IN 1 DAY
     Route: 048
     Dates: start: 20190521
  28. POTASSIUM [Concomitant]
     Active Substance: POTASSIUM
     Dosage: 30.0MMOL/L ONCE/SINGLE ADMINISTRATION
     Route: 042
     Dates: start: 20190604, end: 20190604
  29. LYRICA [Concomitant]
     Active Substance: PREGABALIN
     Indication: Abdominal pain
     Dosage: 50 MILLIGRAM
     Route: 048
     Dates: start: 201905, end: 20190603
  30. LYRICA [Concomitant]
     Active Substance: PREGABALIN
     Dosage: 50 MILLIGRAM
     Route: 048
     Dates: start: 20190604
  31. MIRTAZAPINE [Concomitant]
     Active Substance: MIRTAZAPINE
     Indication: Decreased appetite
     Route: 048
     Dates: start: 20190523
  32. CYCLIZINE [Concomitant]
     Active Substance: CYCLIZINE
     Indication: Nausea
     Dosage: 25 MILLIGRAM, 3 IN 1 DAY
     Route: 048
     Dates: start: 20190522
  33. CYCLIZINE [Concomitant]
     Active Substance: CYCLIZINE
     Dosage: FREQUENCY TEXT: AS REQUIRED
     Route: 048
     Dates: start: 201903
  34. OXYCODONE HYDROCHLORIDE [Concomitant]
     Active Substance: OXYCODONE HYDROCHLORIDE
     Indication: Abdominal pain
     Dosage: 5.0MG AS REQUIRED
     Route: 048
     Dates: start: 201903
  35. DEXAMETHASONE [Concomitant]
     Active Substance: DEXAMETHASONE
     Indication: Vomiting
     Dosage: 8.0MG AS REQUIRED
     Route: 048
     Dates: start: 20190612
  36. DEXAMETHASONE [Concomitant]
     Active Substance: DEXAMETHASONE
     Indication: Nausea
     Dosage: 8.0MG AS REQUIRED
     Route: 048
     Dates: start: 20190612
  37. DEXAMETHASONE [Concomitant]
     Active Substance: DEXAMETHASONE
     Indication: Sepsis
     Dosage: 8.0MG AS REQUIRED
     Route: 048
     Dates: start: 20190612
  38. DEXAMETHASONE [Concomitant]
     Active Substance: DEXAMETHASONE
     Dosage: 4.0MG AS REQUIRED
     Route: 048
     Dates: start: 20190709, end: 20190711
  39. DEXAMETHASONE [Concomitant]
     Active Substance: DEXAMETHASONE
     Dosage: 4.0MG AS REQUIRED
     Route: 048
     Dates: start: 20190709, end: 20190711
  40. DEXAMETHASONE [Concomitant]
     Active Substance: DEXAMETHASONE
     Dosage: 4.0MG AS REQUIRED
     Route: 048
     Dates: start: 20190709, end: 20190711
  41. PANCREATIN [Concomitant]
     Active Substance: PANCRELIPASE
     Indication: Pancreatic failure
     Dosage: FREQUENCY TEXT: AS REQUIRED
     Route: 048
     Dates: start: 201903
  42. DOCUSATE SODIUM [Concomitant]
     Active Substance: DOCUSATE SODIUM
     Indication: Constipation prophylaxis
     Dosage: FREQUENCY TEXT: AS REQUIRED
     Route: 048
     Dates: start: 201903
  43. OXYCODONE HYDROCHLORIDE [Concomitant]
     Active Substance: OXYCODONE HYDROCHLORIDE
     Indication: Abdominal pain
     Dosage: FREQUENCY TEXT: AS REQUIRED
     Route: 048
     Dates: start: 201903

REACTIONS (4)
  - Sepsis [Recovered/Resolved]
  - Gastrointestinal haemorrhage [Recovered/Resolved]
  - Disseminated intravascular coagulation [Recovered/Resolved]
  - Pancreatic carcinoma metastatic [Fatal]

NARRATIVE: CASE EVENT DATE: 20190704
